FAERS Safety Report 5225796-0 (Version None)
Quarter: 2007Q1

REPORT INFORMATION
  Report Type: 
  Country: None (occurrence: None)
  Receive Date: 20070130
  Receipt Date: 20070130
  Transmission Date: 20070707
  Serious: Yes (Other)
  Sender: FDA-Public Use
  Company Number: None

PATIENT
  Sex: Female
  Weight: 63.5036 kg

DRUGS (2)
  1. SERTRALINE [Suspect]
     Indication: ANXIETY
     Dosage: 100 MG ONCE A DAY PO
     Route: 048
  2. SERTRALINE [Suspect]
     Indication: DEPRESSION
     Dosage: 100 MG ONCE A DAY PO
     Route: 048

REACTIONS (8)
  - ABNORMAL DREAMS [None]
  - AGITATION [None]
  - ANXIETY [None]
  - GENERAL PHYSICAL HEALTH DETERIORATION [None]
  - HEADACHE [None]
  - IMPAIRED WORK ABILITY [None]
  - INSOMNIA [None]
  - MENTAL IMPAIRMENT [None]
